FAERS Safety Report 15284943 (Version 1)
Quarter: 2018Q3

REPORT INFORMATION
  Report Type: Spontaneous
  Country: US (occurrence: US)
  Receive Date: 20180801
  Receipt Date: 20180801
  Transmission Date: 20181010
  Serious: Yes (Life-Threatening, Hospitalization, Disabling)
  Sender: FDA-Public Use
  Company Number: None

PATIENT
  Age: 68 Year
  Sex: Female
  Weight: 70.31 kg

DRUGS (2)
  1. FLOVENT HFA [Suspect]
     Active Substance: FLUTICASONE PROPIONATE
     Indication: DYSPNOEA
     Route: 055
     Dates: start: 20170626
  2. PROAIR HFA [Suspect]
     Active Substance: ALBUTEROL SULFATE
     Indication: BRONCHITIS
     Route: 055
     Dates: start: 20170625

REACTIONS (15)
  - Fatigue [None]
  - Hypertension [None]
  - Vomiting [None]
  - Diarrhoea [None]
  - Headache [None]
  - Malaise [None]
  - Somnolence [None]
  - Brain midline shift [None]
  - Subdural haemorrhage [None]
  - Cerebral haemorrhage [None]
  - Nausea [None]
  - Neck pain [None]
  - Subarachnoid haemorrhage [None]
  - Hallucinations, mixed [None]
  - Pneumonia [None]

NARRATIVE: CASE EVENT DATE: 20170625
